FAERS Safety Report 10085245 (Version 1)
Quarter: 2014Q2

REPORT INFORMATION
  Report Type: Report from Study
  Country: CO (occurrence: CO)
  Receive Date: 20140417
  Receipt Date: 20140417
  Transmission Date: 20141212
  Serious: Yes (Other)
  Sender: FDA-Public Use
  Company Number: CO-ABBVIE-14P-036-1226799-00

PATIENT
  Age: 50 Year
  Sex: Female
  Weight: 90 kg

DRUGS (1)
  1. HUMIRA [Suspect]
     Indication: CROHN^S DISEASE
     Route: 058
     Dates: start: 20101118, end: 20140407

REACTIONS (3)
  - Toothache [Not Recovered/Not Resolved]
  - Dental discomfort [Not Recovered/Not Resolved]
  - Dental discomfort [Not Recovered/Not Resolved]
